FAERS Safety Report 23808339 (Version 1)
Quarter: 2024Q2

REPORT INFORMATION
  Report Type: Spontaneous
  Country: US (occurrence: US)
  Receive Date: 20240502
  Receipt Date: 20240502
  Transmission Date: 20240716
  Serious: No
  Sender: FDA-Public Use
  Company Number: US-TEVA-VS-3139161

PATIENT
  Age: 53 Year
  Sex: Female
  Weight: 80.74 kg

DRUGS (5)
  1. AJOVY [Interacting]
     Active Substance: FREMANEZUMAB-VFRM
     Indication: Product used for unknown indication
     Route: 065
     Dates: start: 202202, end: 202208
  2. AJOVY [Interacting]
     Active Substance: FREMANEZUMAB-VFRM
  3. RESLIZUMAB [Suspect]
     Active Substance: RESLIZUMAB
     Indication: Asthma
     Dosage: 1 INFUSION
     Route: 065
     Dates: start: 20231128
  4. BOTOX [Concomitant]
     Active Substance: ONABOTULINUMTOXINA
     Indication: Product used for unknown indication
     Route: 065
  5. ALBUTEROL [Concomitant]
     Active Substance: ALBUTEROL
     Indication: Product used for unknown indication
     Route: 065

REACTIONS (17)
  - Product administration interrupted [Unknown]
  - Diarrhoea [Recovered/Resolved]
  - Eye pain [Not Recovered/Not Resolved]
  - Headache [Unknown]
  - Arthralgia [Unknown]
  - Sinus pain [Unknown]
  - Eyelid ptosis [Not Recovered/Not Resolved]
  - Abdominal pain lower [Recovered/Resolved]
  - Hypoaesthesia oral [Not Recovered/Not Resolved]
  - Atypical migraine [Unknown]
  - Off label use [Unknown]
  - Migraine [Not Recovered/Not Resolved]
  - Facial pain [Not Recovered/Not Resolved]
  - Paraesthesia oral [Not Recovered/Not Resolved]
  - Muscular weakness [Unknown]
  - Abdominal discomfort [Recovered/Resolved]
  - Feeling abnormal [Unknown]

NARRATIVE: CASE EVENT DATE: 20231128
